FAERS Safety Report 10246866 (Version 1)
Quarter: 2014Q2

REPORT INFORMATION
  Report Type: Spontaneous
  Country: DE (occurrence: DE)
  Receive Date: 20140619
  Receipt Date: 20140619
  Transmission Date: 20141212
  Serious: Yes (Congenital Anomaly, Other)
  Sender: FDA-Public Use
  Company Number: DE-ASTRAZENECA-2014SE44142

PATIENT
  Sex: Male
  Weight: 4.5 kg

DRUGS (3)
  1. SEROQUEL PROLONG [Suspect]
     Indication: SCHIZOAFFECTIVE DISORDER
     Route: 064
     Dates: start: 20130107, end: 20131023
  2. FEMOSTON [Suspect]
     Indication: MENSTRUATION IRREGULAR
     Route: 064
  3. FOLSAURE [Concomitant]
     Indication: PROPHYLAXIS OF NEURAL TUBE DEFECT
     Route: 064

REACTIONS (2)
  - Limb reduction defect [Not Recovered/Not Resolved]
  - Large for dates baby [Unknown]
